FAERS Safety Report 22101361 (Version 1)
Quarter: 2023Q1

REPORT INFORMATION
  Report Type: Spontaneous
  Country: US (occurrence: US)
  Receive Date: 20230316
  Receipt Date: 20230316
  Transmission Date: 20230417
  Serious: Yes (Hospitalization)
  Sender: FDA-Public Use
  Company Number: US-IHL-000016

PATIENT
  Age: 91 Year
  Sex: Male

DRUGS (1)
  1. NITROFURANTOIN [Suspect]
     Active Substance: NITROFURANTOIN
     Indication: Dysuria
     Route: 048

REACTIONS (6)
  - Back pain [Unknown]
  - Urinary retention [Recovered/Resolved]
  - Urinary incontinence [Recovered/Resolved]
  - Drug ineffective [Unknown]
  - Bladder dilatation [Recovered/Resolved]
  - Hydronephrosis [Recovered/Resolved]
